FAERS Safety Report 6065795-2 (Version None)
Quarter: 2009Q1

REPORT INFORMATION
  Report Type: 
  Country: None (occurrence: None)
  Receive Date: 20090205
  Receipt Date: 20090129
  Transmission Date: 20090719
  Serious: Yes (Death)
  Sender: FDA-Public Use
  Company Number: US-BAYER-200839683NA

PATIENT
  Age: 58 Year
  Sex: Male

DRUGS (12)
  1. LEVITRA [Suspect]
     Indication: ERECTILE DYSFUNCTION
  2. POTASSIUM CHLORIDE [Concomitant]
  3. MAGNESIUM OXIDE [Concomitant]
  4. IBUPROFEN [Concomitant]
  5. SIMVASTATIN [Concomitant]
  6. HYDROCHLORTHIAZIDE/TRIAMTERENE [Concomitant]
  7. NIFEDIPINE [Concomitant]
  8. MIRTAZAPINE [Concomitant]
  9. BUPROPION HCL [Concomitant]
     Dosage: UNIT DOSE: 200 MG
  10. DILTIAZEM [Concomitant]
  11. LISINOPRIL [Concomitant]
  12. TESTOSTERONE [Concomitant]
     Route: 030

REACTIONS (1)
  - SUDDEN DEATH [None]
